FAERS Safety Report 7591088-8 (Version None)
Quarter: 2011Q3

REPORT INFORMATION
  Report Type: 
  Country: None (occurrence: None)
  Receive Date: 20110705
  Receipt Date: 20110627
  Transmission Date: 20111222
  Serious: Yes (Other)
  Sender: FDA-Public Use
  Company Number: US-GENENTECH-320978

PATIENT

DRUGS (4)
  1. TENECTEPLASE [Suspect]
     Indication: CEREBRAL ARTERY OCCLUSION
     Dosage: 0.1 MG/KG, UNK
     Route: 042
  2. TENECTEPLASE [Suspect]
     Indication: CORONARY ARTERY THROMBOSIS
  3. GRTPA [Suspect]
     Indication: CEREBRAL INFARCTION
     Dosage: 0.9 MG/KG, SINGLE
     Route: 042
  4. GRTPA [Suspect]
     Indication: CORONARY ARTERY THROMBOSIS

REACTIONS (1)
  - CEREBRAL HAEMORRHAGE [None]
